FAERS Safety Report 21559042 (Version 1)
Quarter: 2022Q4

REPORT INFORMATION
  Report Type: Spontaneous
  Country: US (occurrence: None)
  Receive Date: 20221104
  Receipt Date: 20221104
  Transmission Date: 20230113
  Serious: Yes (Hospitalization)
  Sender: FDA-Public Use
  Company Number: None

PATIENT
  Age: 88 Year
  Sex: Male
  Weight: 87.09 kg

DRUGS (10)
  1. CAPECITABINE [Suspect]
     Active Substance: CAPECITABINE
     Indication: Gastric cancer
     Dosage: 1500MG Q12HOURS ORAL?
     Route: 048
     Dates: start: 20221007
  2. ACETAMINOPHEN [Concomitant]
  3. DOCUSATE [Concomitant]
  4. EROGCALCIEROL [Concomitant]
  5. FINASTERIDE [Concomitant]
  6. IMODIUM AD [Concomitant]
  7. LEVOTHYROXINE [Concomitant]
  8. MIDODRINE [Concomitant]
  9. MULTIVITAMIN [Concomitant]
  10. SENNA [Concomitant]

REACTIONS (1)
  - Hospitalisation [None]
